FAERS Safety Report 8905333 (Version 3)
Quarter: 2012Q4

REPORT INFORMATION
  Report Type: 
  Country: PR (occurrence: PR)
  Receive Date: 20121109
  Receipt Date: 20121130
  Transmission Date: 20130627
  Serious: Yes (Other)
  Sender: FDA-Public Use
  Company Number: PR-ABBOTT-12P-131-1002785-00

PATIENT
  Sex: Female
  Weight: 78.09 kg

DRUGS (21)
  1. HUMIRA [Suspect]
     Indication: RHEUMATOID ARTHRITIS
     Route: 058
     Dates: start: 2008
  2. PLAQUENIL [Concomitant]
     Indication: RHEUMATOID ARTHRITIS
     Route: 048
  3. TRAMADOL [Concomitant]
     Indication: RHEUMATOID ARTHRITIS
     Dosage: 2 tabs every 6 hours as needed
     Route: 048
     Dates: start: 2008
  4. GABAPENTIN [Concomitant]
     Indication: RHEUMATOID ARTHRITIS
     Route: 048
     Dates: start: 2009
  5. MOBIC [Concomitant]
     Indication: RHEUMATOID ARTHRITIS
     Dosage: daily
     Route: 048
     Dates: start: 2010
  6. PROTONIX [Concomitant]
     Indication: GASTRIC DISORDER
     Dosage: in the morning
     Route: 048
  7. ZANTAC [Concomitant]
     Indication: GASTRIC DISORDER
     Dosage: in the evening
     Route: 048
  8. WELLBUTRIN XL [Concomitant]
     Indication: BIPOLAR DISORDER
     Dosage: in the morning
     Route: 048
     Dates: start: 2010
  9. WELLBUTRIN XL [Concomitant]
     Indication: DEPRESSION
  10. KLONOPIN [Concomitant]
     Indication: BIPOLAR DISORDER
     Route: 048
     Dates: start: 2008
  11. KLONOPIN [Concomitant]
     Indication: DEPRESSION
  12. GEODON [Concomitant]
     Indication: BIPOLAR DISORDER
     Route: 048
     Dates: start: 2010
  13. GEODON [Concomitant]
     Indication: DEPRESSION
  14. AMBIEN [Concomitant]
     Indication: BIPOLAR DISORDER
     Dosage: at bedtime
     Route: 048
     Dates: start: 2010
  15. AMBIEN [Concomitant]
     Indication: DEPRESSION
  16. CYMBALTA [Concomitant]
     Indication: FIBROMYALGIA
     Route: 048
     Dates: start: 2010
  17. CYMBALTA [Concomitant]
     Indication: DEPRESSION
  18. LAMICTAL [Concomitant]
     Indication: BIPOLAR DISORDER
     Route: 048
     Dates: start: 2010
  19. LAMICTAL [Concomitant]
     Indication: DEPRESSION
  20. BENZOTROPINE [Concomitant]
     Indication: BIPOLAR DISORDER
     Route: 048
     Dates: start: 2010
  21. BENZOTROPINE [Concomitant]
     Indication: DEPRESSION

REACTIONS (2)
  - Dysplasia [Not Recovered/Not Resolved]
  - Fibromyalgia [Not Recovered/Not Resolved]
